FAERS Safety Report 24810948 (Version 2)
Quarter: 2025Q1

REPORT INFORMATION
  Report Type: Spontaneous
  Country: US (occurrence: US)
  Receive Date: 20250106
  Receipt Date: 20250108
  Transmission Date: 20250408
  Serious: Yes (Other)
  Sender: TEVA
  Company Number: US-TEVA-VS-3281966

PATIENT
  Age: 30 Year
  Sex: Female

DRUGS (1)
  1. DEXTROAMPHETAMINE SACCHARATE, AMPHETAMINE ASPARTATE, DEXTROAMPHETAMINE [Suspect]
     Active Substance: AMPHETAMINE ASPARTATE\AMPHETAMINE SULFATE\DEXTROAMPHETAMINE SACCHARATE\DEXTROAMPHETAMINE SULFATE
     Indication: Attention deficit hyperactivity disorder
     Dosage: ONE TABLET A DAY AND IS TAKING THE MEDICATION AT NIGHT.
     Route: 048
     Dates: start: 2024

REACTIONS (3)
  - Autoimmune disorder [Unknown]
  - Joint swelling [Unknown]
  - Hyperaemia [Unknown]

NARRATIVE: CASE EVENT DATE: 20240101
